FAERS Safety Report 17520950 (Version 1)
Quarter: 2020Q1

REPORT INFORMATION
  Report Type: Spontaneous
  Country: US (occurrence: US)
  Receive Date: 20200310
  Receipt Date: 20200310
  Transmission Date: 20200409
  Serious: Yes (Death, Other)
  Sender: FDA-Public Use
  Company Number: US-PFIZER INC-2020102033

PATIENT
  Age: 58 Year
  Sex: Male

DRUGS (3)
  1. GABAPENTIN. [Suspect]
     Active Substance: GABAPENTIN
     Indication: CHEST PAIN
     Dosage: 2400 MG, DAILY
     Dates: start: 200106
  2. CLONAZEPAM. [Suspect]
     Active Substance: CLONAZEPAM
     Indication: CHEST PAIN
     Dosage: 4 MG, DAILY
     Dates: start: 200106
  3. MORPHINE [Suspect]
     Active Substance: MORPHINE
     Indication: CHEST PAIN
     Dosage: 1.5 G, DAILY
     Route: 048
     Dates: start: 200106, end: 200106

REACTIONS (6)
  - Constipation [Unknown]
  - Mental impairment [Unknown]
  - Drug ineffective for unapproved indication [Recovered/Resolved]
  - Nausea [Unknown]
  - Off label use [Recovered/Resolved]
  - Vomiting [Unknown]

NARRATIVE: CASE EVENT DATE: 200106
